FAERS Safety Report 8791940 (Version 1)
Quarter: 2012Q4

REPORT INFORMATION
  Report Type: 
  Country: AT (occurrence: AT)
  Receive Date: 20120918
  Receipt Date: 20120918
  Transmission Date: 20130627
  Serious: Yes (Other)
  Sender: FDA-Public Use
  Company Number: AT-ASTRAZENECA-2012SE71110

PATIENT
  Sex: Female
  Weight: 70 kg

DRUGS (1)
  1. CARBOSTESIN [Suspect]
     Indication: CAESAREAN SECTION

REACTIONS (1)
  - Drug effect incomplete [Recovered/Resolved]
